FAERS Safety Report 6543626 (Version 1)
Quarter: 2020Q3

REPORT INFORMATION
  Report Type: Spontaneous
  Country: SE (occurrence: SE)
  Receive Date: 20080205
  Receipt Date: 20080205
  Transmission Date: 20201105
  Serious: Yes (Other)
  Sender: FDA-Public Use
  Company Number: SE-ROCHE-543008

PATIENT
  Age: 88 Year
  Sex: Female

DRUGS (5)
  1. IBANDRONIC ACID. [Suspect]
     Active Substance: IBANDRONIC ACID
     Dosage: FORM: CONCENTRATE FOR SOLUTION FOR INFUSION, STRENGTH: 6 MG/6 ML, DOSAGE: 6 MGC MG C
     Route: 042
     Dates: start: 20061004, end: 20070613
  2. FEMARA [Concomitant]
     Active Substance: LETROZOLE
  3. ZOMETA [Suspect]
     Active Substance: ZOLEDRONIC ACID
     Dosage: FORM: CONCENTRATE FOR SOLUTION FOR INFUSION, STRENGTH: 4 MG/5 ML, DOSAGE: 4 MGC MG C
     Route: 042
     Dates: start: 20051226, end: 20061004
  4. COZAAR [Concomitant]
     Active Substance: LOSARTAN POTASSIUM
     Dosage: FORM: FILM?COATED TABLET
  5. UNSPECIFIED INGREDIENT [Concomitant]
     Active Substance: UNSPECIFIED INGREDIENT

REACTIONS (1)
  - Osteonecrosis [Unknown]

NARRATIVE: CASE EVENT DATE: 20070905
